FAERS Safety Report 16364225 (Version 2)
Quarter: 2019Q2

REPORT INFORMATION
  Report Type: Spontaneous
  Country: CN (occurrence: CN)
  Receive Date: 20190528
  Receipt Date: 20190529
  Transmission Date: 20190711
  Serious: Yes (Hospitalization)
  Sender: FDA-Public Use
  Company Number: PHHY2019CN121025

PATIENT
  Age: 8 Year
  Sex: Male

DRUGS (6)
  1. IMIPENEM [Suspect]
     Active Substance: IMIPENEM
     Indication: PYREXIA
     Dosage: 0.5 G, TID
     Route: 065
     Dates: start: 20161224
  2. LEVAMISOLE [Suspect]
     Active Substance: LEVAMISOLE
     Indication: INFECTION
     Dosage: UNK
     Route: 065
  3. AMPHOTERICIN B. [Suspect]
     Active Substance: AMPHOTERICIN B
     Indication: INFECTION
     Dosage: 30 MG, QD
     Route: 065
  4. CICLOSPORIN [Suspect]
     Active Substance: CYCLOSPORINE
     Indication: APLASTIC ANAEMIA
     Dosage: UNK
     Route: 065
  5. VORICONAZOLE. [Suspect]
     Active Substance: VORICONAZOLE
     Indication: INFECTION
     Dosage: 200 MG, BID
     Route: 065
  6. CASPOFUNGIN [Suspect]
     Active Substance: CASPOFUNGIN
     Indication: INFECTION PROPHYLAXIS
     Dosage: 50 MG, QD
     Route: 065

REACTIONS (7)
  - Hypoalbuminaemia [Unknown]
  - Trichosporon infection [Unknown]
  - Product use in unapproved indication [Unknown]
  - Pyrexia [Unknown]
  - Lymph node pain [Unknown]
  - Hypokalaemia [Unknown]
  - Lung infection [Unknown]

NARRATIVE: CASE EVENT DATE: 2016
